FAERS Safety Report 8009774-4 (Version None)
Quarter: 2011Q4

REPORT INFORMATION
  Report Type: 
  Country: None (occurrence: None)
  Receive Date: 20111228
  Receipt Date: 20111217
  Transmission Date: 20120403
  Serious: Yes (Hospitalization)
  Sender: FDA-Public Use
  Company Number: US-PAR PHARMACEUTICAL, INC-2011SCPR003560

PATIENT

DRUGS (8)
  1. LITHIUM [Interacting]
     Dosage: 900 MG, BID
     Route: 048
  2. LITHIUM [Interacting]
     Dosage: 600MG IN THE MORNING AND 900MG AT NIGHT
     Route: 048
  3. CLONIDINE [Concomitant]
     Indication: PRODUCT USED FOR UNKNOWN INDICATION
     Dosage: 0.1 MG, TID
     Route: 048
  4. FAMOTIDINE [Concomitant]
     Indication: PRODUCT USED FOR UNKNOWN INDICATION
     Dosage: 20 MG, BID
     Route: 048
  5. RISPERIDONE [Suspect]
     Indication: PRODUCT USED FOR UNKNOWN INDICATION
     Dosage: 4MG AT BEDTIME
     Route: 048
  6. LITHIUM [Interacting]
     Dosage: 600 MG, BID
     Route: 048
  7. MELATONIN [Concomitant]
     Indication: PRODUCT USED FOR UNKNOWN INDICATION
     Dosage: 3 MG, HS
     Route: 048
  8. LITHIUM [Interacting]
     Indication: MANIA
     Dosage: 150 MG, EVERY EVENING AT BEDTIME
     Route: 048

REACTIONS (4)
  - DRUG INTERACTION [None]
  - DYSPHEMIA [None]
  - CONDITION AGGRAVATED [None]
  - EMOTIONAL DISTRESS [None]
